FAERS Safety Report 15580925 (Version 1)
Quarter: 2018Q4

REPORT INFORMATION
  Report Type: Spontaneous
  Country: CZ (occurrence: CZ)
  Receive Date: 20181102
  Receipt Date: 20181102
  Transmission Date: 20190205
  Serious: Yes (Other)
  Sender: FDA-Public Use
  Company Number: CZ-BAUSCH-BL-2018-029974

PATIENT
  Age: 71 Year
  Sex: Female

DRUGS (4)
  1. DOXYCYCLINE. [Suspect]
     Active Substance: DOXYCYCLINE
     Indication: LARGE CELL LUNG CANCER METASTATIC
     Route: 065
  2. AFATINIB [Suspect]
     Active Substance: AFATINIB
     Indication: LARGE CELL LUNG CANCER METASTATIC
     Route: 065
  3. PEMETREXED. [Suspect]
     Active Substance: PEMETREXED
     Indication: LARGE CELL LUNG CANCER METASTATIC
     Route: 065
  4. LOPERAMIDE [Suspect]
     Active Substance: LOPERAMIDE
     Indication: LARGE CELL LUNG CANCER METASTATIC
     Route: 065

REACTIONS (3)
  - Ocular discomfort [Unknown]
  - Leukopenia [Unknown]
  - Dizziness [Unknown]
